FAERS Safety Report 19782632 (Version 4)
Quarter: 2021Q4

REPORT INFORMATION
  Report Type: Spontaneous
  Country: US (occurrence: US)
  Receive Date: 20210902
  Receipt Date: 20211129
  Transmission Date: 20220303
  Serious: Yes (Other)
  Sender: FDA-Public Use
  Company Number: US-BAYER-2021-203560

PATIENT
  Age: 26 Year
  Sex: Male

DRUGS (4)
  1. JIVI [Suspect]
     Active Substance: DAMOCTOCOG ALFA PEGOL
     Dosage: UNK
  2. JIVI [Suspect]
     Active Substance: DAMOCTOCOG ALFA PEGOL
     Dosage: ONE DOSE OF 4200 IU, PREVENTATIVE DOSE FOR ACTIVITY
     Dates: start: 202108, end: 202108
  3. JIVI [Suspect]
     Active Substance: DAMOCTOCOG ALFA PEGOL
     Dosage: ONE DOSE OF 4200 IU FOR RIGHT ANKLE BLEED TREATMENT
     Route: 042
     Dates: start: 20210901, end: 20210901
  4. JIVI [Suspect]
     Active Substance: DAMOCTOCOG ALFA PEGOL
     Dosage: 4200 IU, ONCE, FOR THE LEFT ANKLE BLEED TREATMENT
     Route: 042
     Dates: start: 20211119, end: 20211119

REACTIONS (3)
  - Haemarthrosis [Recovered/Resolved]
  - Haemarthrosis [Recovered/Resolved]
  - Product dose omission issue [None]

NARRATIVE: CASE EVENT DATE: 20210830
